FAERS Safety Report 16542531 (Version 1)
Quarter: 2019Q3

REPORT INFORMATION
  Report Type: Spontaneous
  Country: IT (occurrence: IT)
  Receive Date: 20190709
  Receipt Date: 20190709
  Transmission Date: 20191004
  Serious: Yes (Other)
  Sender: FDA-Public Use
  Company Number: IT-AUROBINDO-AUR-APL-2019-038048

PATIENT

DRUGS (5)
  1. COLECALCIFEROL [Suspect]
     Active Substance: CHOLECALCIFEROL
     Indication: PRODUCT USED FOR UNKNOWN INDICATION
     Dosage: 100000 DOSAGE FORM, EVERY MONTH, 100000 U, QMO
     Route: 065
  2. FEMARA [Suspect]
     Active Substance: LETROZOLE
     Indication: BREAST CANCER
     Dosage: 1 DOSAGE FORM, ONCE A DAY,(IST CYCLE)
     Route: 065
     Dates: start: 20180727
  3. RIBOCICLIB. [Suspect]
     Active Substance: RIBOCICLIB
     Indication: BREAST CANCER
     Dosage: UNK
     Route: 065
  4. BISOPROLOL [Suspect]
     Active Substance: BISOPROLOL
     Indication: CARDIAC DISORDER
     Dosage: 2.5 MILLIGRAM
     Route: 065
  5. FEMARA [Suspect]
     Active Substance: LETROZOLE
     Dosage: UNK, (10TH CYCLE)
     Route: 065
     Dates: start: 20190509

REACTIONS (6)
  - Metastases to the mediastinum [Unknown]
  - Breast cancer [Unknown]
  - Blood calcium increased [Unknown]
  - Metastases to ovary [Unknown]
  - Malignant neoplasm progression [Unknown]
  - Metastases to peritoneum [Unknown]

NARRATIVE: CASE EVENT DATE: 201905
